FAERS Safety Report 8926813 (Version 3)
Quarter: 2013Q1

REPORT INFORMATION
  Report Type: Spontaneous
  Country: US (occurrence: US)
  Receive Date: 20121127
  Receipt Date: 20130122
  Transmission Date: 20140127
  Serious: No
  Sender: FDA-Public Use
  Company Number: US-009507513-1211USA007940

PATIENT
  Sex: 0
  Weight: 59.86 kg

DRUGS (2)
  1. IMPLANON [Suspect]
     Dosage: 1 ROD EVERY THREE YEARS
     Route: 059
     Dates: start: 20121115, end: 20121115
  2. IMPLANON [Suspect]
     Dosage: UNK
     Route: 059
     Dates: start: 20121115

REACTIONS (3)
  - Device difficult to use [Unknown]
  - Product quality issue [Unknown]
  - No adverse event [Unknown]
